FAERS Safety Report 18622357 (Version 1)
Quarter: 2020Q4

REPORT INFORMATION
  Report Type: Spontaneous
  Country: US (occurrence: US)
  Receive Date: 20201215
  Receipt Date: 20201215
  Transmission Date: 20210114
  Serious: Yes (Hospitalization)
  Sender: FDA-Public Use
  Company Number: None

PATIENT
  Age: 82 Year
  Sex: Female

DRUGS (1)
  1. BAMLANIVIMAB. [Suspect]
     Active Substance: BAMLANIVIMAB
     Indication: COVID-19
     Dates: start: 20201208, end: 20201208

REACTIONS (4)
  - Dyspnoea [None]
  - Cough [None]
  - Pneumonia [None]
  - Atrial fibrillation [None]

NARRATIVE: CASE EVENT DATE: 20201210
